FAERS Safety Report 23971925 (Version 1)
Quarter: 2024Q2

REPORT INFORMATION
  Report Type: Spontaneous
  Country: US (occurrence: US)
  Receive Date: 20240613
  Receipt Date: 20240613
  Transmission Date: 20240716
  Serious: Yes (Hospitalization)
  Sender: FDA-Public Use
  Company Number: US-DSJP-DSU-2024-126177

PATIENT
  Sex: Female

DRUGS (1)
  1. VANFLYTA [Suspect]
     Active Substance: QUIZARTINIB DIHYDROCHLORIDE
     Indication: Acute myeloid leukaemia
     Dosage: 26.5 MG, (TAKE 1 TABLET ONCE DAILY ON DAYS 1-14 IF QTCF LESS THAT 450MS THEN ON DAY 15 IF QTCF LESS
     Route: 048
     Dates: start: 20240518

REACTIONS (3)
  - Vulval disorder [Unknown]
  - Infection [Unknown]
  - Vomiting [Unknown]
